FAERS Safety Report 25494062 (Version 2)
Quarter: 2025Q3

REPORT INFORMATION
  Report Type: Report from Study
  Country: US (occurrence: US)
  Receive Date: 20250630
  Receipt Date: 20250905
  Transmission Date: 20251020
  Serious: Yes (Life-Threatening, Hospitalization)
  Sender: MYLAN
  Company Number: US-MYLANLABS-2025M1052651

PATIENT
  Sex: Male
  Weight: 83.6 kg

DRUGS (36)
  1. FENTANYL [Suspect]
     Active Substance: FENTANYL
     Indication: Product used for unknown indication
  2. FENTANYL [Suspect]
     Active Substance: FENTANYL
     Route: 065
  3. FENTANYL [Suspect]
     Active Substance: FENTANYL
     Route: 065
  4. FENTANYL [Suspect]
     Active Substance: FENTANYL
  5. LENACAPAVIR [Suspect]
     Active Substance: LENACAPAVIR
     Indication: Prophylaxis against HIV infection
     Route: 058
     Dates: start: 20250522, end: 20250522
  6. LENACAPAVIR [Suspect]
     Active Substance: LENACAPAVIR
     Dates: start: 20250522, end: 20250522
  7. LENACAPAVIR [Suspect]
     Active Substance: LENACAPAVIR
     Dates: start: 20250522, end: 20250522
  8. LENACAPAVIR [Suspect]
     Active Substance: LENACAPAVIR
     Route: 058
     Dates: start: 20250522, end: 20250522
  9. LENACAPAVIR [Suspect]
     Active Substance: LENACAPAVIR
  10. LENACAPAVIR [Suspect]
     Active Substance: LENACAPAVIR
  11. LENACAPAVIR [Suspect]
     Active Substance: LENACAPAVIR
     Route: 058
  12. LENACAPAVIR [Suspect]
     Active Substance: LENACAPAVIR
     Route: 058
  13. LENACAPAVIR [Suspect]
     Active Substance: LENACAPAVIR
     Route: 048
  14. LENACAPAVIR [Suspect]
     Active Substance: LENACAPAVIR
  15. LENACAPAVIR [Suspect]
     Active Substance: LENACAPAVIR
  16. LENACAPAVIR [Suspect]
     Active Substance: LENACAPAVIR
     Route: 048
  17. DESCOVY [Concomitant]
     Active Substance: EMTRICITABINE\TENOFOVIR ALAFENAMIDE FUMARATE
  18. DESCOVY [Concomitant]
     Active Substance: EMTRICITABINE\TENOFOVIR ALAFENAMIDE FUMARATE
     Route: 065
  19. DESCOVY [Concomitant]
     Active Substance: EMTRICITABINE\TENOFOVIR ALAFENAMIDE FUMARATE
     Route: 065
  20. DESCOVY [Concomitant]
     Active Substance: EMTRICITABINE\TENOFOVIR ALAFENAMIDE FUMARATE
  21. REMERON [Concomitant]
     Active Substance: MIRTAZAPINE
  22. REMERON [Concomitant]
     Active Substance: MIRTAZAPINE
     Route: 065
  23. REMERON [Concomitant]
     Active Substance: MIRTAZAPINE
     Route: 065
  24. REMERON [Concomitant]
     Active Substance: MIRTAZAPINE
  25. SEROQUEL [Concomitant]
     Active Substance: QUETIAPINE FUMARATE
  26. SEROQUEL [Concomitant]
     Active Substance: QUETIAPINE FUMARATE
     Route: 065
  27. SEROQUEL [Concomitant]
     Active Substance: QUETIAPINE FUMARATE
     Route: 065
  28. SEROQUEL [Concomitant]
     Active Substance: QUETIAPINE FUMARATE
  29. SUBOXONE [Concomitant]
     Active Substance: BUPRENORPHINE HYDROCHLORIDE\NALOXONE HYDROCHLORIDE
  30. SUBOXONE [Concomitant]
     Active Substance: BUPRENORPHINE HYDROCHLORIDE\NALOXONE HYDROCHLORIDE
     Route: 065
  31. SUBOXONE [Concomitant]
     Active Substance: BUPRENORPHINE HYDROCHLORIDE\NALOXONE HYDROCHLORIDE
     Route: 065
  32. SUBOXONE [Concomitant]
     Active Substance: BUPRENORPHINE HYDROCHLORIDE\NALOXONE HYDROCHLORIDE
  33. DEPAKOTE [Concomitant]
     Active Substance: DIVALPROEX SODIUM
  34. DEPAKOTE [Concomitant]
     Active Substance: DIVALPROEX SODIUM
     Route: 065
  35. DEPAKOTE [Concomitant]
     Active Substance: DIVALPROEX SODIUM
     Route: 065
  36. DEPAKOTE [Concomitant]
     Active Substance: DIVALPROEX SODIUM

REACTIONS (2)
  - Overdose [Recovered/Resolved]
  - Psychotic disorder [Recovered/Resolved]

NARRATIVE: CASE EVENT DATE: 20250609
